FAERS Safety Report 14664347 (Version 2)
Quarter: 2018Q2

REPORT INFORMATION
  Report Type: Report from Study
  Country: TR (occurrence: TR)
  Receive Date: 20180321
  Receipt Date: 20180517
  Transmission Date: 20180711
  Serious: Yes (Other)
  Sender: FDA-Public Use
  Company Number: TR-ALEXION PHARMACEUTICALS INC.-A201801005

PATIENT
  Age: 64 Year
  Sex: Female
  Weight: 111 kg

DRUGS (41)
  1. PANTO                              /01263204/ [Concomitant]
     Indication: PROPHYLAXIS
     Dosage: 40 ML, BID
     Route: 048
     Dates: start: 20170102
  2. VOLTAREN [Concomitant]
     Active Substance: DICLOFENAC SODIUM
     Indication: PAIN
     Dosage: 50 MG, PRN
     Route: 048
     Dates: start: 20170221
  3. OTRIVINE [Concomitant]
     Active Substance: XYLOMETAZOLINE HYDROCHLORIDE
     Indication: UPPER-AIRWAY COUGH SYNDROME
     Dosage: 10 ML, PRN
     Route: 045
     Dates: start: 20171031
  4. COUMADIN [Concomitant]
     Active Substance: WARFARIN SODIUM
     Dosage: 10 MG, QOD
     Route: 048
     Dates: start: 20171119, end: 20171121
  5. COUMADIN [Concomitant]
     Active Substance: WARFARIN SODIUM
     Dosage: 7.5 MG, QOD
     Route: 048
     Dates: start: 20171123, end: 20171123
  6. COUMADIN [Concomitant]
     Active Substance: WARFARIN SODIUM
     Dosage: 7.5 MG, QOD
     Route: 048
     Dates: start: 20171127, end: 20171207
  7. COUMADIN [Concomitant]
     Active Substance: WARFARIN SODIUM
     Dosage: 10 MG, QOD
     Route: 048
     Dates: start: 20171208, end: 20171208
  8. COUMADIN [Concomitant]
     Active Substance: WARFARIN SODIUM
     Dosage: 7.5 MG, QOD
     Route: 048
     Dates: start: 20171209, end: 20171216
  9. NAPROSYN [Concomitant]
     Active Substance: NAPROXEN
     Indication: PAIN
     Dosage: 750 MG, SINGLE
     Route: 048
     Dates: start: 20171207, end: 20171207
  10. COUMADIN [Concomitant]
     Active Substance: WARFARIN SODIUM
     Dosage: 7.5 MG, QD
     Route: 048
     Dates: start: 20171124, end: 20171125
  11. ULCURAN [Concomitant]
     Indication: PROPHYLAXIS
     Dosage: 50 MG, SINGLE
     Route: 042
     Dates: start: 20180103, end: 20180103
  12. BENEXOL B12                        /00176001/ [Concomitant]
     Indication: VITAMIN SUPPLEMENTATION
     Dosage: 1 DF, QD
     Route: 048
     Dates: start: 2012
  13. PREDNISOLONE. [Concomitant]
     Active Substance: PREDNISOLONE
     Indication: NEUROMYELITIS OPTICA SPECTRUM DISORDER
     Dosage: 32 MG, BID
     Route: 048
     Dates: start: 20171220
  14. ECULIZUMAB [Suspect]
     Active Substance: ECULIZUMAB
     Indication: NEUROMYELITIS OPTICA SPECTRUM DISORDER
     Dosage: 240 ML, UNK
     Route: 042
     Dates: start: 20160331, end: 20160331
  15. SPASMEX                            /00376202/ [Concomitant]
     Active Substance: TROSPIUM CHLORIDE
     Indication: NEUROMYELITIS OPTICA SPECTRUM DISORDER
     Dosage: 60 MG, BID
     Route: 048
     Dates: start: 20161103
  16. CIPRALEX [Concomitant]
     Active Substance: ESCITALOPRAM OXALATE
     Indication: DEPRESSION
     Dosage: 10 MG, QD
     Route: 048
     Dates: start: 20170221
  17. PREDNOL                            /00049601/ [Concomitant]
     Active Substance: METHYLPREDNISOLONE
     Indication: PROPHYLAXIS
     Dosage: 1000 MG, QMONTH
     Route: 042
     Dates: start: 20170308
  18. COUMADIN [Concomitant]
     Active Substance: WARFARIN SODIUM
     Dosage: 10 MG, QOD
     Route: 048
     Dates: start: 20171126, end: 20171206
  19. ECULIZUMAB [Suspect]
     Active Substance: ECULIZUMAB
     Dosage: 120 MG, UNK
     Route: 065
     Dates: start: 20171207
  20. ECULIZUMAB [Suspect]
     Active Substance: ECULIZUMAB
     Dosage: 240 ML, UNK
     Route: 042
     Dates: start: 20180216, end: 20180216
  21. EUTHYROX [Concomitant]
     Active Substance: LEVOTHYROXINE SODIUM
     Indication: HYPOTHYROIDISM
     Dosage: 100 MG, QD
     Route: 048
     Dates: start: 20161104
  22. FORSTEO [Concomitant]
     Active Substance: TERIPARATIDE
     Indication: OSTEOPOROSIS
     Dosage: 0.25 MCG/MCL, QD
     Route: 058
     Dates: start: 20170210
  23. PREDNOL                            /00049601/ [Concomitant]
     Active Substance: METHYLPREDNISOLONE
     Indication: NEUROMYELITIS OPTICA SPECTRUM DISORDER
     Dosage: 8 MG, QOD
     Route: 048
     Dates: start: 20170309
  24. EXODERIL [Concomitant]
     Active Substance: NAFTIFINE HYDROCHLORIDE
     Indication: TINEA PEDIS
     Dosage: UNK, QD
     Route: 061
     Dates: start: 20170511
  25. GLUCOSAMINE CHONDROITIN MSM [Concomitant]
     Indication: PROPHYLAXIS
     Dosage: 3000 MG, BID
     Route: 048
     Dates: start: 20170818
  26. COUMADIN [Concomitant]
     Active Substance: WARFARIN SODIUM
     Indication: ANTIPHOSPHOLIPID SYNDROME
     Dosage: 7.5 MG, QOD
     Route: 048
     Dates: start: 20171118, end: 20171122
  27. TRILEPTAL [Concomitant]
     Active Substance: OXCARBAZEPINE
     Indication: SEIZURE
     Dosage: 150 MG, BID
     Route: 048
     Dates: start: 20170118
  28. CELLCEPT [Concomitant]
     Active Substance: MYCOPHENOLATE MOFETIL\MYCOPHENOLATE MOFETIL HYDROCHLORIDE
     Indication: NEUROMYELITIS OPTICA SPECTRUM DISORDER
     Dosage: 1000 MG, BID
     Route: 048
     Dates: start: 20170317
  29. COUMADIN [Concomitant]
     Active Substance: WARFARIN SODIUM
     Dosage: 5 MG, SINGLE
     Route: 048
     Dates: start: 20171210, end: 20171210
  30. PREDNISOLONE. [Concomitant]
     Active Substance: PREDNISOLONE
     Dosage: 1000 MG, SINGLE
     Route: 042
     Dates: start: 20180103, end: 20180103
  31. ECULIZUMAB [Suspect]
     Active Substance: ECULIZUMAB
     Dosage: 240 ML, UNK
     Route: 042
     Dates: start: 20180104, end: 20180104
  32. PIYELOSEPTYL [Concomitant]
     Active Substance: NITROFURANTOIN
     Indication: PROPHYLAXIS URINARY TRACT INFECTION
     Dosage: 100 MG, TID
     Route: 048
     Dates: start: 20170215
  33. VOLTAREN [Concomitant]
     Active Substance: DICLOFENAC SODIUM
     Dosage: 75 MG, SINGLE
     Route: 048
     Dates: start: 20171123, end: 20171123
  34. PREDNOL                            /00049601/ [Concomitant]
     Active Substance: METHYLPREDNISOLONE
     Dosage: 16 MG, QOD
     Route: 048
     Dates: start: 20170310
  35. PREDNOL                            /00049601/ [Concomitant]
     Active Substance: METHYLPREDNISOLONE
     Dosage: 1000 MG, QD
     Route: 042
     Dates: start: 20171211, end: 20171221
  36. COUMADIN [Concomitant]
     Active Substance: WARFARIN SODIUM
     Dosage: 7.5 MG, QOD
     Route: 048
     Dates: start: 20171218, end: 20171221
  37. CALCIMAX D3                        /00944201/ [Concomitant]
     Active Substance: CALCIUM CARBONATE\CHOLECALCIFEROL
     Indication: OSTEOPOROSIS
     Dosage: 1000 MG, QD
     Route: 048
     Dates: start: 20161219
  38. EXODERIL [Concomitant]
     Active Substance: NAFTIFINE HYDROCHLORIDE
     Indication: DERMATITIS
  39. LYRICA [Concomitant]
     Active Substance: PREGABALIN
     Indication: NEUROMYELITIS OPTICA SPECTRUM DISORDER
     Dosage: 150 MG, TID
     Route: 048
     Dates: start: 20171031
  40. COUMADIN [Concomitant]
     Active Substance: WARFARIN SODIUM
     Dosage: 32 MG, QOD
     Route: 048
     Dates: start: 20171219, end: 20171219
  41. AVIL                               /00085102/ [Concomitant]
     Active Substance: PHENIRAMINE MALEATE
     Indication: FLUSHING
     Dosage: 22.7 MG, PRN
     Route: 048
     Dates: start: 201707

REACTIONS (1)
  - Blood pressure increased [Recovered/Resolved]

NARRATIVE: CASE EVENT DATE: 20171219
